FAERS Safety Report 7334329-4 (Version None)
Quarter: 2011Q1

REPORT INFORMATION
  Report Type: 
  Country: None (occurrence: None)
  Receive Date: 20110307
  Receipt Date: 20110125
  Transmission Date: 20110831
  Serious: Yes (Death)
  Sender: FDA-Public Use
  Company Number: US-TYCO HEALTHCARE/MALLINCKRODT-T201100419

PATIENT
  Sex: Female

DRUGS (9)
  1. AMPHETAMINE AND DEXTROAMPHETAMINE SALTS [Suspect]
     Route: 048
  2. METHADOSE [Suspect]
     Route: 048
  3. FUROSEMIDE [Suspect]
     Route: 048
  4. LEVOTHYROXINE [Suspect]
     Route: 048
  5. ALPRAZOLAM [Suspect]
     Route: 048
  6. SIMVASTATIN [Suspect]
     Route: 048
  7. PANTOPRAZOLE [Suspect]
     Route: 048
  8. HYDROCODONE/ACETAMINOPHEN [Suspect]
     Route: 048
  9. BETA BLOCKING AGENTS [Suspect]
     Route: 048

REACTIONS (1)
  - COMPLETED SUICIDE [None]
